FAERS Safety Report 13193799 (Version 2)
Quarter: 2017Q2

REPORT INFORMATION
  Report Type: Spontaneous
  Country: AU (occurrence: AU)
  Receive Date: 20170207
  Receipt Date: 20170413
  Transmission Date: 20170830
  Serious: Yes (Other)
  Sender: FDA-Public Use
  Company Number: AU-JNJFOC-20170205004

PATIENT

DRUGS (1)
  1. ITRACONAZOLE. [Suspect]
     Active Substance: ITRACONAZOLE
     Indication: ANTIFUNGAL PROPHYLAXIS
     Dosage: STARTED 1 TO 2 DAYS PRIOR TO CHEMOTHERAPY
     Route: 048

REACTIONS (7)
  - Hepatic function abnormal [Unknown]
  - Hallucination [Unknown]
  - Drug ineffective [Unknown]
  - Pyrexia [Unknown]
  - Febrile neutropenia [Unknown]
  - Aspergillus test positive [Unknown]
  - Nausea [Unknown]
